FAERS Safety Report 8519876-1 (Version None)
Quarter: 2012Q3

REPORT INFORMATION
  Report Type: 
  Country: None (occurrence: None)
  Receive Date: 20120719
  Receipt Date: 20120711
  Transmission Date: 20120928
  Serious: No
  Sender: FDA-Public Use
  Company Number: US-BIOGENIDEC-2012BI025508

PATIENT
  Sex: Female

DRUGS (1)
  1. TYSABRI [Suspect]
     Indication: MULTIPLE SCLEROSIS
     Route: 042
     Dates: start: 20101022, end: 20110811

REACTIONS (9)
  - DEPRESSION [None]
  - GAIT DISTURBANCE [None]
  - CRYING [None]
  - SUICIDAL IDEATION [None]
  - HYPOAESTHESIA [None]
  - BONE PAIN [None]
  - STRESS [None]
  - PARAESTHESIA [None]
  - INSOMNIA [None]
